FAERS Safety Report 4394427-4 (Version None)
Quarter: 2004Q3

REPORT INFORMATION
  Report Type: 
  Country: None (occurrence: None)
  Receive Date: 20040706
  Receipt Date: 20040621
  Transmission Date: 20050211
  Serious: Yes (Death, Disabling)
  Sender: FDA-Public Use
  Company Number: 2004043201

PATIENT
  Sex: Female

DRUGS (2)
  1. LOPID [Suspect]
     Indication: ILL-DEFINED DISORDER
  2. CERIVASTATIN SODIUM (CERIVASTATIN SODIUM) [Suspect]
     Indication: ILL-DEFINED DISORDER

REACTIONS (4)
  - ANXIETY [None]
  - EMOTIONAL DISORDER [None]
  - INJURY [None]
  - PAIN [None]
